FAERS Safety Report 9441082 (Version 8)
Quarter: 2014Q1

REPORT INFORMATION
  Report Type: Spontaneous
  Country: US (occurrence: US)
  Receive Date: 20130805
  Receipt Date: 20140210
  Transmission Date: 20141002
  Serious: Yes (Other)
  Sender: FDA-Public Use
  Company Number: US-GLAXOSMITHKLINE-A1036172A

PATIENT
  Age: 47 Year
  Sex: Female

DRUGS (2)
  1. FLOLAN [Suspect]
     Indication: PULMONARY ARTERIAL HYPERTENSION
     Dosage: 39.5NGKM CONTINUOUS
     Route: 042
     Dates: start: 19991123
  2. REVATIO [Concomitant]

REACTIONS (9)
  - Infusion site infection [Recovered/Resolved]
  - Infusion site pain [Recovered/Resolved]
  - Infusion site erythema [Recovered/Resolved]
  - Purulent discharge [Recovered/Resolved]
  - Device related infection [Recovered/Resolved]
  - Central venous catheterisation [Recovered/Resolved]
  - Product quality issue [Unknown]
  - Catheter site infection [Recovered/Resolved]
  - Medical device complication [Recovered/Resolved]
